FAERS Safety Report 5673507-7 (Version None)
Quarter: 2008Q1

REPORT INFORMATION
  Report Type: 
  Country: None (occurrence: None)
  Receive Date: 20080319
  Receipt Date: 20080306
  Transmission Date: 20080703
  Serious: Yes (Other)
  Sender: FDA-Public Use
  Company Number: SE-GENENTECH-257571

PATIENT
  Age: 45 Year
  Sex: Female

DRUGS (5)
  1. HERCEPTIN [Suspect]
     Indication: BREAST CANCER
     Dosage: UNK, UNK
     Dates: start: 20080101
  2. SENDOXAN [Suspect]
     Indication: DRUG USE FOR UNKNOWN INDICATION
     Dosage: UNK, UNK
     Dates: start: 20060101, end: 20060101
  3. DOCETAXEL [Suspect]
     Indication: BREAST CANCER
     Dosage: UNK, UNK
     Dates: start: 20060101, end: 20060101
  4. SUSPECTED DRUG [Suspect]
     Indication: BREAST CANCER
     Dosage: UNK, UNK
     Dates: start: 20060101, end: 20060101
  5. EPIRUBICIN [Concomitant]
     Indication: DRUG USE FOR UNKNOWN INDICATION
     Dates: start: 20061001

REACTIONS (2)
  - MITRAL VALVE INCOMPETENCE [None]
  - PULMONARY HYPERTENSION [None]
